FAERS Safety Report 16238421 (Version 2)
Quarter: 2019Q2

REPORT INFORMATION
  Report Type: Report from Study
  Country: PT (occurrence: PT)
  Receive Date: 20190425
  Receipt Date: 20190510
  Transmission Date: 20190711
  Serious: Yes (Other)
  Sender: FDA-Public Use
  Company Number: PHHY2019PT094199

PATIENT
  Age: 51 Year
  Sex: Female

DRUGS (2)
  1. GILENYA [Suspect]
     Active Substance: FINGOLIMOD HYDROCHLORIDE
     Dosage: 0.5 MG, QOD HALF DOSE (DAILY TO EVERY OTHER DAY)
     Route: 048
     Dates: start: 20190306
  2. GILENYA [Suspect]
     Active Substance: FINGOLIMOD HYDROCHLORIDE
     Indication: MULTIPLE SCLEROSIS
     Dosage: 0.5 MG, QD
     Route: 048
     Dates: start: 20140710

REACTIONS (12)
  - Tremor [Unknown]
  - Underdose [Unknown]
  - Lymphocyte count decreased [Recovering/Resolving]
  - Pyrexia [Recovering/Resolving]
  - Delirium [Recovered/Resolved]
  - Headache [Recovering/Resolving]
  - Speech disorder [Unknown]
  - Urinary tract infection [Recovered/Resolved]
  - Migraine [Recovered/Resolved]
  - Cerebrovascular accident [Unknown]
  - Escherichia urinary tract infection [Unknown]
  - Pain [Recovering/Resolving]

NARRATIVE: CASE EVENT DATE: 20190306
